FAERS Safety Report 9780612 (Version 2)
Quarter: 2014Q1

REPORT INFORMATION
  Report Type: Report from Study
  Country: JP (occurrence: JP)
  Receive Date: 20131224
  Receipt Date: 20140205
  Transmission Date: 20141002
  Serious: Yes (Other)
  Sender: FDA-Public Use
  Company Number: JP-JNJFOC-20131213573

PATIENT
  Age: 62 Year
  Sex: Female

DRUGS (19)
  1. SIMPONI [Suspect]
     Indication: RHEUMATOID ARTHRITIS
     Route: 058
     Dates: start: 20130930, end: 20130930
  2. SIMPONI [Suspect]
     Indication: RHEUMATOID ARTHRITIS
     Route: 058
     Dates: start: 20131028
  3. SIMPONI [Suspect]
     Indication: RHEUMATOID ARTHRITIS
     Route: 058
     Dates: start: 20130902, end: 20130902
  4. SIMPONI [Suspect]
     Indication: RHEUMATOID ARTHRITIS
     Route: 058
     Dates: start: 20130805, end: 20130805
  5. SIMPONI [Suspect]
     Indication: RHEUMATOID ARTHRITIS
     Route: 058
     Dates: start: 20130701, end: 20130701
  6. SIMPONI [Suspect]
     Indication: RHEUMATOID ARTHRITIS
     Route: 058
     Dates: start: 20130603, end: 20130603
  7. SIMPONI [Suspect]
     Indication: RHEUMATOID ARTHRITIS
     Route: 058
     Dates: start: 20130507, end: 20130507
  8. METHOTREXATE [Concomitant]
     Indication: RHEUMATOID ARTHRITIS
     Route: 065
  9. LOXONIN [Concomitant]
     Indication: RHEUMATOID ARTHRITIS
     Route: 062
     Dates: start: 20130603
  10. FOLIAMIN [Concomitant]
     Indication: PROPHYLAXIS
     Route: 048
  11. LOXOPROFEN SODIUM [Concomitant]
     Indication: RHEUMATOID ARTHRITIS
     Route: 048
  12. ADALAT CR [Concomitant]
     Indication: HYPERTENSION
     Route: 048
  13. ISCOTIN [Concomitant]
     Indication: PROPHYLAXIS
     Route: 048
  14. EPADEL S [Concomitant]
     Indication: HYPERLIPIDAEMIA
     Route: 048
  15. IPD [Concomitant]
     Indication: ASTHMA
     Route: 048
  16. NEXIUM [Concomitant]
     Indication: PROPHYLAXIS
     Route: 048
  17. PRAZAXA [Concomitant]
     Indication: ATRIAL FIBRILLATION
     Route: 048
  18. UNIPHYL [Concomitant]
     Indication: ASTHMA
     Route: 048
  19. DEPAS [Concomitant]
     Indication: PROPHYLAXIS
     Route: 048

REACTIONS (1)
  - Breast mass [Recovered/Resolved]
